FAERS Safety Report 8997327 (Version 2)
Quarter: 2013Q1

REPORT INFORMATION
  Report Type: Spontaneous
  Country: US (occurrence: US)
  Receive Date: 20130104
  Receipt Date: 20130122
  Transmission Date: 20140127
  Serious: Yes (Other)
  Sender: FDA-Public Use
  Company Number: US-PFIZER INC-2013003043

PATIENT
  Age: 33 Year
  Sex: Female
  Weight: 65.76 kg

DRUGS (7)
  1. NEURONTIN [Suspect]
     Indication: NEURALGIA
     Dosage: 800 MG, 3X/DAY
     Route: 048
  2. NEURONTIN [Suspect]
     Dosage: 800 MG, 2X/DAY
     Route: 048
  3. METHADONE [Concomitant]
     Dosage: 10 MG, 2X/DAY
  4. MELOXICAM [Concomitant]
     Dosage: 15 MG, 1X/DAY
  5. TRAZODONE [Concomitant]
     Dosage: 50 MG, 1X/DAY
  6. KLONOPIN [Concomitant]
     Dosage: UNK
  7. RITALIN [Concomitant]
     Dosage: 10 MG, AS NEEDED

REACTIONS (1)
  - Spinal disorder [Unknown]
